FAERS Safety Report 6770458-1 (Version None)
Quarter: 2010Q2

REPORT INFORMATION
  Report Type: 
  Country: None (occurrence: None)
  Receive Date: 20100608
  Receipt Date: 20100525
  Transmission Date: 20101027
  Serious: Yes (Death)
  Sender: FDA-Public Use
  Company Number: 2010064016

PATIENT
  Age: 84 Year
  Sex: Male
  Weight: 95.2 kg

DRUGS (17)
  1. DALTEPARIN SODIUM [Suspect]
     Indication: DEEP VEIN THROMBOSIS
     Dosage: 18000 IU, DAILY, SUBCUTANEOUS; 15000 IU, DAILY, SUBCUTANEOUS; 12500 IU, DAILY, SUBCUTANEOUS
     Route: 058
     Dates: start: 20091104, end: 20091202
  2. DALTEPARIN SODIUM [Suspect]
     Indication: PULMONARY EMBOLISM
     Dosage: 18000 IU, DAILY, SUBCUTANEOUS; 15000 IU, DAILY, SUBCUTANEOUS; 12500 IU, DAILY, SUBCUTANEOUS
     Route: 058
     Dates: start: 20091104, end: 20091202
  3. DALTEPARIN SODIUM [Suspect]
     Indication: DEEP VEIN THROMBOSIS
     Dosage: 18000 IU, DAILY, SUBCUTANEOUS; 15000 IU, DAILY, SUBCUTANEOUS; 12500 IU, DAILY, SUBCUTANEOUS
     Route: 058
     Dates: start: 20091203, end: 20091207
  4. DALTEPARIN SODIUM [Suspect]
     Indication: PULMONARY EMBOLISM
     Dosage: 18000 IU, DAILY, SUBCUTANEOUS; 15000 IU, DAILY, SUBCUTANEOUS; 12500 IU, DAILY, SUBCUTANEOUS
     Route: 058
     Dates: start: 20091203, end: 20091207
  5. DALTEPARIN SODIUM [Suspect]
     Indication: DEEP VEIN THROMBOSIS
     Dosage: 18000 IU, DAILY, SUBCUTANEOUS; 15000 IU, DAILY, SUBCUTANEOUS; 12500 IU, DAILY, SUBCUTANEOUS
     Route: 058
     Dates: start: 20091208
  6. DALTEPARIN SODIUM [Suspect]
     Indication: PULMONARY EMBOLISM
     Dosage: 18000 IU, DAILY, SUBCUTANEOUS; 15000 IU, DAILY, SUBCUTANEOUS; 12500 IU, DAILY, SUBCUTANEOUS
     Route: 058
     Dates: start: 20091208
  7. PRILOSEC (OMEPRAZOLE) [Concomitant]
  8. NORVASC [Concomitant]
  9. DETROL [Concomitant]
  10. CELEBREX [Concomitant]
  11. BACLOFEN [Concomitant]
  12. VALSARTAN [Concomitant]
  13. AVASTIN [Concomitant]
  14. OXALIPLATIN [Concomitant]
  15. LEUCOVORIN CALCIUM [Concomitant]
  16. FLUOROURACIL [Concomitant]
  17. TOPROL-XL [Concomitant]

REACTIONS (2)
  - MALIGNANT NEOPLASM PROGRESSION [None]
  - RECTAL CANCER METASTATIC [None]
